FAERS Safety Report 9350832 (Version 1)
Quarter: 2013Q2

REPORT INFORMATION
  Report Type: Spontaneous
  Country: JP (occurrence: JP)
  Receive Date: 20130617
  Receipt Date: 20130617
  Transmission Date: 20140414
  Serious: Yes (Death)
  Sender: FDA-Public Use
  Company Number: JP-009507513-1306JPN003913

PATIENT
  Sex: 0

DRUGS (1)
  1. GASTER [Suspect]
     Route: 048

REACTIONS (1)
  - Interstitial lung disease [Fatal]
